FAERS Safety Report 9431394 (Version 1)
Quarter: 2013Q3

REPORT INFORMATION
  Report Type: Spontaneous
  Country: IN (occurrence: IN)
  Receive Date: 20130730
  Receipt Date: 20130730
  Transmission Date: 20140515
  Serious: Yes (Life-Threatening)
  Sender: FDA-Public Use
  Company Number: IN-ASTRAZENECA-2013SE57735

PATIENT
  Age: 40 Year
  Sex: Male

DRUGS (6)
  1. BRILINTA [Suspect]
     Route: 048
     Dates: start: 20130717, end: 20130717
  2. ASPIRIN [Concomitant]
     Indication: ANTIPLATELET THERAPY
     Route: 048
     Dates: start: 20130717
  3. ATORVASTATIN [Concomitant]
     Indication: HYPOLIPIDAEMIA
     Route: 048
     Dates: start: 20130717
  4. METOPROLOL [Concomitant]
     Indication: CARDIAC DISORDER
     Route: 048
     Dates: start: 20130717
  5. RAMIPRIL [Concomitant]
     Indication: ANGIOTENSIN CONVERTING ENZYME INCREASED
     Route: 048
     Dates: start: 20130717
  6. ESOMEPRAZOLE [Concomitant]
     Indication: GASTRIC PH DECREASED
     Route: 048
     Dates: start: 20130717

REACTIONS (1)
  - Thrombosis in device [Recovered/Resolved]
